FAERS Safety Report 23797683 (Version 1)
Quarter: 2024Q2

REPORT INFORMATION
  Report Type: Report from Study
  Country: IQ (occurrence: IQ)
  Receive Date: 20240430
  Receipt Date: 20240430
  Transmission Date: 20240716
  Serious: Yes (Other)
  Sender: FDA-Public Use
  Company Number: IQ-BAYER-2024A062150

PATIENT
  Age: 43 Year
  Sex: Female

DRUGS (2)
  1. EYLEA [Suspect]
     Active Substance: AFLIBERCEPT
     Indication: Retinal vein occlusion
     Dosage: 8 INJECT MONTHLY, SOLUTION FOR INJECTION, STRENGTH- 40MG/ML
     Dates: start: 202309
  2. EYLEA [Suspect]
     Active Substance: AFLIBERCEPT
     Dosage: 7 DF, SOLUTION FOR INJECTION, STRENGTH- 40MG/ML

REACTIONS (2)
  - Dry eye [Recovering/Resolving]
  - Therapeutic response unexpected [Unknown]

NARRATIVE: CASE EVENT DATE: 20240424
